FAERS Safety Report 4604388-8 (Version None)
Quarter: 2005Q1

REPORT INFORMATION
  Report Type: 
  Country: None (occurrence: None)
  Receive Date: 20050214
  Receipt Date: 20041115
  Transmission Date: 20050727
  Serious: No
  Sender: FDA-Public Use
  Company Number: US_0411108499

PATIENT
  Age: 44 Year
  Sex: Male

DRUGS (1)
  1. CIALIS [Suspect]
     Dosage: 20 MG
     Dates: start: 20041015

REACTIONS (5)
  - ERECTION INCREASED [None]
  - EYE DISORDER [None]
  - NASAL CONGESTION [None]
  - RHINORRHOEA [None]
  - THERAPEUTIC RESPONSE INCREASED [None]
